FAERS Safety Report 7131934-5 (Version None)
Quarter: 2010Q4

REPORT INFORMATION
  Report Type: 
  Country: None (occurrence: None)
  Receive Date: 20101117
  Receipt Date: 20101105
  Transmission Date: 20110411
  Serious: Yes (Hospitalization)
  Sender: FDA-Public Use
  Company Number: 5212010

PATIENT
  Age: 63 Year
  Sex: Female

DRUGS (2)
  1. TIMOLOL MALEATE, EYE DROPS, UNKNOWN STRENGTH + MFG. [Suspect]
     Indication: GLAUCOMA
  2. DORZOLAMIDE, EYE-DROPS, UNKNOWN STRENTH + MFG [Suspect]
     Indication: GLAUCOMA

REACTIONS (13)
  - ACANTHOSIS [None]
  - ERYTHEMA [None]
  - HYPERAEMIA [None]
  - HYPERKERATOSIS [None]
  - LYMPHOCYTIC INFILTRATION [None]
  - PAPULE [None]
  - SCAR [None]
  - SECRETION DISCHARGE [None]
  - SKIN FIBROSIS [None]
  - SKIN HYPERPIGMENTATION [None]
  - SKIN HYPOPIGMENTATION [None]
  - SKIN LESION [None]
  - THROMBOCYTOPENIA [None]
